FAERS Safety Report 7990639-9 (Version None)
Quarter: 2011Q4

REPORT INFORMATION
  Report Type: 
  Country: None (occurrence: None)
  Receive Date: 20111219
  Receipt Date: 20111013
  Transmission Date: 20120403
  Serious: No
  Sender: FDA-Public Use
  Company Number: US-ASTRAZENECA-2011SE61782

PATIENT
  Age: 50 Year
  Sex: Female
  Weight: 80.3 kg

DRUGS (3)
  1. CRESTOR [Suspect]
     Indication: BLOOD CHOLESTEROL ABNORMAL
     Route: 048
  2. GLYPIZIDE [Concomitant]
  3. INSULIN [Concomitant]
     Dosage: 70 UNITS

REACTIONS (4)
  - THERAPY CESSATION [None]
  - DIABETES MELLITUS [None]
  - BLOOD CHOLESTEROL INCREASED [None]
  - MYALGIA [None]
